FAERS Safety Report 7136844-5 (Version None)
Quarter: 2010Q4

REPORT INFORMATION
  Report Type: 
  Country: None (occurrence: None)
  Receive Date: 20101119
  Receipt Date: 20101103
  Transmission Date: 20110411
  Serious: Yes (Other)
  Sender: FDA-Public Use
  Company Number: 022023

PATIENT
  Age: 14 Year
  Sex: Male
  Weight: 24 kg

DRUGS (1)
  1. EQUASYM (EQUASYM XL) [Suspect]
     Indication: ATTENTION DEFICIT/HYPERACTIVITY DISORDER
     Dosage: (20 MG ORAL)
     Route: 048
     Dates: start: 20100908, end: 20100920

REACTIONS (2)
  - EXUDATIVE RETINOPATHY [None]
  - VISUAL ACUITY REDUCED [None]
